FAERS Safety Report 6659097-0 (Version None)
Quarter: 2010Q1

REPORT INFORMATION
  Report Type: 
  Country: None (occurrence: None)
  Receive Date: 20100330
  Receipt Date: 20100319
  Transmission Date: 20100710
  Serious: Yes (Other)
  Sender: FDA-Public Use
  Company Number: BR-PFIZER INC-2010035544

PATIENT
  Age: 51 Year
  Sex: Male

DRUGS (1)
  1. CHAMPIX [Suspect]
     Indication: NICOTINE DEPENDENCE
     Dosage: 1 TABLET, 1X/DAY
     Route: 048
     Dates: start: 20091125, end: 20100319

REACTIONS (2)
  - HALLUCINATION [None]
  - NERVOUSNESS [None]
